FAERS Safety Report 5051252-9 (Version None)
Quarter: 2006Q3

REPORT INFORMATION
  Report Type: 
  Country: None (occurrence: None)
  Receive Date: 20060714
  Receipt Date: 20060320
  Transmission Date: 20061208
  Serious: Yes (Hospitalization)
  Sender: FDA-Public Use
  Company Number: 2006UW10437

PATIENT
  Age: 11109 Day
  Sex: Female

DRUGS (3)
  1. SEROQUEL [Suspect]
     Indication: BIPOLAR I DISORDER
     Route: 048
     Dates: start: 20051228, end: 20060219
  2. STUDY PROCEDURE [Suspect]
     Indication: BIPOLAR I DISORDER
  3. ATIVAN [Concomitant]
     Indication: ANXIETY
     Route: 048
     Dates: start: 20060105, end: 20060118

REACTIONS (2)
  - BIPOLAR DISORDER [None]
  - DEPRESSION [None]
